FAERS Safety Report 10473300 (Version 1)
Quarter: 2014Q3

REPORT INFORMATION
  Report Type: Spontaneous
  Country: HU (occurrence: HU)
  Receive Date: 20140924
  Receipt Date: 20140924
  Transmission Date: 20150326
  Serious: Yes (Death)
  Sender: FDA-Public Use
  Company Number: HU-ACTELION-A-CH2014-105186

PATIENT
  Age: 57 Year
  Sex: Male
  Weight: 42 kg

DRUGS (9)
  1. NITROGLYCERIN. [Concomitant]
     Active Substance: NITROGLYCERIN
     Dosage: UNK, BID
  2. PROXYPHYLLINE [Concomitant]
     Active Substance: PROXYPHYLLINE
     Dosage: 400 MG, BID
  3. FUROSEMIDE. [Concomitant]
     Active Substance: FUROSEMIDE
     Dosage: 40 MG, UNK
  4. FAMOTIDINE. [Concomitant]
     Active Substance: FAMOTIDINE
     Dosage: 40 MG, BID
  5. ENOXAPARIN [Concomitant]
     Active Substance: ENOXAPARIN
     Dosage: 0.6 ML, UNK
  6. TRACLEER [Suspect]
     Active Substance: BOSENTAN\BOSENTAN MONOHYDRATE
     Indication: PULMONARY ARTERIAL HYPERTENSION
     Dosage: 125 MG, BID
     Route: 048
     Dates: start: 20120904, end: 20140911
  7. TRACLEER [Suspect]
     Active Substance: BOSENTAN\BOSENTAN MONOHYDRATE
     Dosage: 62.5 MG, BID
     Route: 048
     Dates: start: 20100525, end: 20120904
  8. CLOPIDOGREL [Concomitant]
     Active Substance: CLOPIDOGREL BISULFATE
     Dosage: 75 MG, UNK
  9. METHYLPREDISOLONE [Concomitant]
     Active Substance: METHYLPREDNISOLONE
     Dosage: 4 MG, UNK

REACTIONS (1)
  - Death [Fatal]
